FAERS Safety Report 10021626 (Version 2)
Quarter: 2014Q1

REPORT INFORMATION
  Report Type: Spontaneous
  Country: US (occurrence: US)
  Receive Date: 20140319
  Receipt Date: 20140319
  Transmission Date: 20141002
  Serious: No
  Sender: FDA-Public Use
  Company Number: US-TEVA-381018USA

PATIENT
  Sex: Female
  Weight: 71.73 kg

DRUGS (8)
  1. FLUOCINONIDE [Suspect]
     Indication: TINEA INFECTION
  2. LISINOPRIL [Concomitant]
     Dosage: 10 MILLIGRAM DAILY;
  3. METOPROLOL [Concomitant]
     Dosage: 100 MILLIGRAM DAILY;
  4. CALCIUM [Concomitant]
  5. ERGOCALCIFEROL [Concomitant]
  6. NITROFURANTOIN [Concomitant]
     Dosage: 200 MILLIGRAM DAILY;
  7. BIOTIN [Concomitant]
  8. WARFARIN [Concomitant]
     Dosage: 5 MILLIGRAM DAILY; HS
     Route: 048
     Dates: start: 201212

REACTIONS (1)
  - Drug ineffective [Recovered/Resolved]
